FAERS Safety Report 14455059 (Version 9)
Quarter: 2019Q1

REPORT INFORMATION
  Report Type: Spontaneous
  Country: US (occurrence: US)
  Receive Date: 20180129
  Receipt Date: 20190319
  Transmission Date: 20190417
  Serious: Yes (Hospitalization)
  Sender: FDA-Public Use
  Company Number: US-ACTELION-A-NJ2018-166512

PATIENT
  Sex: Female
  Weight: 90.7 kg

DRUGS (11)
  1. OPSUMIT [Suspect]
     Active Substance: MACITENTAN
     Indication: PULMONARY ARTERIAL HYPERTENSION
     Dosage: 10 MG, QD
     Route: 048
  2. ORENITRAM [Suspect]
     Active Substance: TREPROSTINIL
     Dosage: 9 MG, TID
     Route: 065
  3. ORENITRAM [Suspect]
     Active Substance: TREPROSTINIL
     Dosage: 5 MG, TID
     Route: 065
  4. OXYGEN. [Concomitant]
     Active Substance: OXYGEN
  5. REMODULIN [Concomitant]
     Active Substance: TREPROSTINIL
     Route: 042
  6. ORENITRAM [Suspect]
     Active Substance: TREPROSTINIL
     Dosage: 10 MG, TID
     Route: 065
  7. ORENITRAM [Suspect]
     Active Substance: TREPROSTINIL
     Dosage: 8 MG, TID
     Route: 065
  8. ADCIRCA [Concomitant]
     Active Substance: TADALAFIL
  9. ORENITRAM [Suspect]
     Active Substance: TREPROSTINIL
     Indication: PRODUCT USED FOR UNKNOWN INDICATION
     Dosage: 8.5 MG, TID
     Route: 065
  10. ORENITRAM [Suspect]
     Active Substance: TREPROSTINIL
     Dosage: UNK
     Route: 065
  11. ELIQUIS [Concomitant]
     Active Substance: APIXABAN

REACTIONS (18)
  - Dyspnoea [Recovering/Resolving]
  - Diarrhoea [Unknown]
  - Heart rate increased [Unknown]
  - Chest pain [Unknown]
  - Abdominal distension [Unknown]
  - Pulmonary arterial hypertension [Unknown]
  - Nasal congestion [Unknown]
  - Muscle spasms [Recovering/Resolving]
  - Condition aggravated [Unknown]
  - Bone pain [Unknown]
  - Fluid retention [Recovering/Resolving]
  - Oxygen consumption increased [Unknown]
  - Pain [Unknown]
  - Feeling abnormal [Unknown]
  - Disease progression [Unknown]
  - Vascular device infection [Unknown]
  - Headache [Unknown]
  - Catheter management [Unknown]
